FAERS Safety Report 6782412-4 (Version None)
Quarter: 2010Q2

REPORT INFORMATION
  Report Type: 
  Country: None (occurrence: None)
  Receive Date: 20100616
  Receipt Date: 20100601
  Transmission Date: 20101027
  Serious: Yes (Hospitalization, Other)
  Sender: FDA-Public Use
  Company Number: A-US2010-35055

PATIENT
  Age: 62 Year
  Sex: Female
  Weight: 165.1 kg

DRUGS (2)
  1. TRACLEER [Suspect]
     Indication: PULMONARY ARTERIAL HYPERTENSION
     Dosage: 125 MG, BID, ORAL
     Route: 048
     Dates: start: 20090808
  2. CALCIUM CHANNEL BLOCKERS [Concomitant]

REACTIONS (6)
  - ANAEMIA [None]
  - DIABETIC FOOT [None]
  - FOOT AMPUTATION [None]
  - GASTROINTESTINAL HAEMORRHAGE [None]
  - OFF LABEL USE [None]
  - OSTEOMYELITIS [None]
